FAERS Safety Report 25497773 (Version 1)
Quarter: 2025Q3

REPORT INFORMATION
  Report Type: Spontaneous
  Country: CN (occurrence: CN)
  Receive Date: 20250701
  Receipt Date: 20250701
  Transmission Date: 20251020
  Serious: Yes (Hospitalization)
  Sender: ROCHE
  Company Number: CN-ROCHE-10000321007

PATIENT
  Age: 77 Year
  Sex: Female

DRUGS (3)
  1. VEMURAFENIB [Suspect]
     Active Substance: VEMURAFENIB
     Indication: Colon cancer
     Route: 048
     Dates: start: 20250512, end: 20250611
  2. IRINOTECAN [Suspect]
     Active Substance: IRINOTECAN
     Indication: Colon cancer
     Route: 042
     Dates: start: 20250530, end: 20250530
  3. CETUXIMAB [Suspect]
     Active Substance: CETUXIMAB
     Indication: Colon cancer
     Route: 042
     Dates: start: 20250603, end: 20250604

REACTIONS (4)
  - Atrial fibrillation [Recovering/Resolving]
  - Malaise [Recovering/Resolving]
  - Extrasystoles [Recovering/Resolving]
  - Off label use [Unknown]

NARRATIVE: CASE EVENT DATE: 20250607
